FAERS Safety Report 20559937 (Version 1)
Quarter: 2022Q1

REPORT INFORMATION
  Report Type: Spontaneous
  Country: US (occurrence: None)
  Receive Date: 20220305
  Receipt Date: 20220305
  Transmission Date: 20220423
  Serious: Yes (Hospitalization)
  Sender: FDA-Public Use
  Company Number: None

PATIENT
  Age: 69 Year
  Sex: Male
  Weight: 60.1 kg

DRUGS (3)
  1. ACALABRUTINIB [Suspect]
     Active Substance: ACALABRUTINIB
     Dates: end: 20220207
  2. BENDAMUSTINE HYDROCHLORIDE [Suspect]
     Active Substance: BENDAMUSTINE HYDROCHLORIDE
     Dates: end: 20220111
  3. RITUXIMAB [Suspect]
     Active Substance: RITUXIMAB
     Dates: end: 20220110

REACTIONS (10)
  - Odynophagia [None]
  - Pyrexia [None]
  - Oropharyngeal pain [None]
  - COVID-19 [None]
  - Oral disorder [None]
  - Hypophagia [None]
  - Oral candidiasis [None]
  - Tongue ulceration [None]
  - Glossitis [None]
  - Herpes zoster disseminated [None]

NARRATIVE: CASE EVENT DATE: 20220217
